FAERS Safety Report 21982295 (Version 1)
Quarter: 2023Q1

REPORT INFORMATION
  Report Type: Spontaneous
  Country: US (occurrence: US)
  Receive Date: 20230213
  Receipt Date: 20230213
  Transmission Date: 20230418
  Serious: Yes (Other)
  Sender: FDA-Public Use
  Company Number: US-NOVOPROD-1020626

PATIENT
  Sex: Female

DRUGS (2)
  1. NOVOLOG [Suspect]
     Active Substance: INSULIN ASPART
     Indication: Type 2 diabetes mellitus
     Dosage: 42 IU (13 UNITS, 14 UNITS, OR 15 UNITS)
     Route: 058
  2. NOVOLOG [Suspect]
     Active Substance: INSULIN ASPART
     Dosage: 42 IU (13 UNITS, 14 UNITS, OR 15 UNITS)
     Route: 058

REACTIONS (4)
  - Multiple sclerosis [Not Recovered/Not Resolved]
  - Cataract [Recovered/Resolved]
  - Eye inflammation [Unknown]
  - Vision blurred [Not Recovered/Not Resolved]

NARRATIVE: CASE EVENT DATE: 20130101
